FAERS Safety Report 8604978-1 (Version None)
Quarter: 2012Q3

REPORT INFORMATION
  Report Type: 
  Country: None (occurrence: None)
  Receive Date: 20120820
  Receipt Date: 20120814
  Transmission Date: 20120928
  Serious: Yes (Hospitalization, Other)
  Sender: FDA-Public Use
  Company Number: BR-PFIZER INC-2012198317

PATIENT
  Age: 58 Year
  Sex: Male
  Weight: 119 kg

DRUGS (8)
  1. ATORVASTATIN CALCIUM [Suspect]
     Indication: BLOOD CHOLESTEROL INCREASED
     Dosage: 20 MG, 1X/DAY (AT NIGHT AFTER DINNER)
     Route: 048
     Dates: start: 20120301
  2. VASTAREL [Concomitant]
     Indication: ARRHYTHMIA
     Dosage: UNK
     Dates: start: 20120517
  3. MICARDIS [Concomitant]
     Indication: HYPERTENSION
     Dosage: 40 MG STRENGTH
     Dates: start: 20120517
  4. NORVASC [Concomitant]
     Indication: HYPERTENSION
     Dosage: 5 MG, (12 IN 12 HOURS) 2X/DAY
     Dates: start: 19970101
  5. LIPITOR [Concomitant]
     Indication: BLOOD CHOLESTEROL INCREASED
     Dosage: UNK
  6. ASPIRIN [Concomitant]
     Indication: ANTICOAGULANT THERAPY
     Dosage: 100 MG STRENGTH
     Dates: start: 20120507
  7. PANTOPRAZOLE [Concomitant]
     Indication: GASTRIC DISORDER
     Dosage: UNK
     Dates: start: 20120517
  8. METOPROLOL SUCCINATE [Concomitant]
     Indication: CARDIOVASCULAR EVENT PROPHYLAXIS
     Dosage: UNK
     Dates: start: 20120517

REACTIONS (2)
  - DIABETES MELLITUS [None]
  - INFARCTION [None]
